FAERS Safety Report 9391215 (Version 1)
Quarter: 2013Q3

REPORT INFORMATION
  Report Type: Spontaneous
  Country: US (occurrence: None)
  Receive Date: 20130705
  Receipt Date: 20130705
  Transmission Date: 20140515
  Serious: Yes (Other)
  Sender: FDA-Public Use
  Company Number: US-1199006

PATIENT
  Age: 36 Year
  Sex: Male

DRUGS (3)
  1. NEVANAC [Suspect]
     Indication: POSTOPERATIVE CARE
     Dosage: 1 GTT TID OS OPHTHALMIC(0.1%)
     Route: 047
     Dates: start: 20130403, end: 20130409
  2. VIGAMOX [Suspect]
     Indication: POSTOPERATIVE CARE
     Dosage: 1 GTT  TID  OS OPHTHALMIC(0.5%)
     Route: 047
     Dates: start: 20130403, end: 20130423
  3. LOTEMAX [Concomitant]

REACTIONS (5)
  - Keratopathy [None]
  - Hypermetropia [None]
  - Toxicity to various agents [None]
  - Corneal opacity [None]
  - Corneal deposits [None]
